FAERS Safety Report 9082941 (Version 1)
Quarter: 2013Q1

REPORT INFORMATION
  Report Type: Report from Study
  Country: US (occurrence: US)
  Receive Date: 20130131
  Receipt Date: 20130131
  Transmission Date: 20140127
  Serious: No
  Sender: FDA-Public Use
  Company Number: US-ABBOTT-12P-163-0991777-00

PATIENT
  Age: 49 Year
  Sex: Female
  Weight: 123.49 kg

DRUGS (5)
  1. HUMIRA [Suspect]
     Indication: PSORIASIS
     Route: 058
     Dates: start: 201110, end: 201201
  2. HUMIRA [Suspect]
     Route: 058
     Dates: start: 201207, end: 201208
  3. UNKNOWN DIABETIC MEDICATIONS [Concomitant]
     Indication: TYPE 2 DIABETES MELLITUS
     Dates: end: 201209
  4. UNKNOWN HYPERTENSION MEDICATIONS [Concomitant]
     Indication: HYPERTENSION
     Dates: end: 201209
  5. UNKNOWN ASTHMA MEDICATIONS [Concomitant]
     Indication: ASTHMA
     Dates: end: 201209

REACTIONS (2)
  - Psoriasis [Unknown]
  - Gastric bypass [Recovered/Resolved]
